FAERS Safety Report 6162814-X (Version None)
Quarter: 2009Q2

REPORT INFORMATION
  Report Type: 
  Country: None (occurrence: None)
  Receive Date: 20090421
  Receipt Date: 20090406
  Transmission Date: 20091009
  Serious: Yes (Death)
  Sender: FDA-Public Use
  Company Number: FR-GENENTECH-281389

PATIENT

DRUGS (6)
  1. RITUXIMAB [Suspect]
     Indication: B-CELL LYMPHOMA
     Dosage: 375 MG/M2, Q28D
     Route: 065
  2. INTERFERON ALFA-2A [Suspect]
     Indication: B-CELL LYMPHOMA
     Dosage: 3 MIU, 3/WEEK
     Route: 058
  3. CYCLOPHOSPHAMIDE [Suspect]
     Indication: B-CELL LYMPHOMA
     Dosage: 600 MG/M2, Q28D
     Route: 042
  4. DOXORUBICIN HCL [Suspect]
     Indication: B-CELL LYMPHOMA
     Dosage: 1.25 MG/M2, Q28D
     Route: 042
  5. ETOPOSIDE [Suspect]
     Indication: B-CELL LYMPHOMA
     Dosage: 100 MG/M2, Q28D
     Route: 042
  6. PREDNISOLONE [Suspect]
     Indication: B-CELL LYMPHOMA
     Dosage: 40 MG/M2, QDX5D/28DC
     Route: 048

REACTIONS (7)
  - ANAEMIA [None]
  - DEATH [None]
  - DISEASE PROGRESSION [None]
  - INFECTION [None]
  - NEUTROPENIA [None]
  - PYREXIA [None]
  - THROMBOCYTOPENIA [None]
